FAERS Safety Report 15765116 (Version 2)
Quarter: 2019Q1

REPORT INFORMATION
  Report Type: Spontaneous
  Country: US (occurrence: US)
  Receive Date: 20181227
  Receipt Date: 20190102
  Transmission Date: 20190417
  Serious: Yes (Hospitalization, Other)
  Sender: FDA-Public Use
  Company Number: US-GBPHLPEH-2018-PEL-003498

PATIENT

DRUGS (12)
  1. GABLOFEN [Suspect]
     Active Substance: BACLOFEN
     Indication: MUSCLE SPASTICITY
     Dosage: 1200-1490MCG
     Route: 037
  2. VALIUM [Concomitant]
     Active Substance: DIAZEPAM
     Dosage: 2 MG, QID
     Route: 048
  3. KLONOPIN [Concomitant]
     Active Substance: CLONAZEPAM
     Dosage: 0.5 MG, TID
     Route: 048
  4. GABLOFEN [Suspect]
     Active Substance: BACLOFEN
     Indication: CEREBRAL PALSY
     Dosage: 1490.4 ?G, QD
     Route: 037
     Dates: start: 20180511
  5. VALIUM [Concomitant]
     Active Substance: DIAZEPAM
     Indication: ANXIETY
     Dosage: 2 MG, PRN
     Route: 048
  6. GABLOFEN [Suspect]
     Active Substance: BACLOFEN
     Dosage: 700 ?G, QD
     Route: 037
  7. GABLOFEN [Suspect]
     Active Substance: BACLOFEN
     Dosage: 750 ?G, QD
     Route: 037
     Dates: start: 20180515
  8. DOCUSATE SODIUM. [Concomitant]
     Active Substance: DOCUSATE SODIUM
     Dosage: 1 DF, BID
     Route: 048
  9. MICROGESTIN FE 1.5/30 [Concomitant]
     Active Substance: ETHINYL ESTRADIOL\NORETHINDRONE ACETATE
     Dosage: 1.5 MG, 30MCG, (21)/75 MG (7)
     Route: 048
  10. TRIAMCINOLONE ACETONIDE (GLUCOCORTICOID) [Concomitant]
     Dosage: UNK, BID, FOR 7 DAYS
     Route: 061
  11. NYSTATIN. [Concomitant]
     Active Substance: NYSTATIN
     Indication: PRODUCT USED FOR UNKNOWN INDICATION
     Dosage: UNK, BID, FOR 14 DAYS
     Route: 061
     Dates: start: 20170612
  12. SENNA                              /00142201/ [Concomitant]
     Active Substance: SENNA LEAF
     Dosage: 8.6 MG, BID
     Route: 048

REACTIONS (10)
  - Hypoglycaemia [Recovered/Resolved]
  - Hypertonia [Recovered/Resolved]
  - Muscle spasticity [Recovered/Resolved]
  - Device issue [Recovered/Resolved]
  - Drug ineffective [Unknown]
  - Staphylococcal infection [Recovered/Resolved]
  - Tachycardia [Recovered/Resolved]
  - Agitation [Recovered/Resolved]
  - Device failure [Recovered/Resolved]
  - Drug withdrawal syndrome [Recovered/Resolved]

NARRATIVE: CASE EVENT DATE: 20180512
